FAERS Safety Report 21967901 (Version 2)
Quarter: 2023Q2

REPORT INFORMATION
  Report Type: Spontaneous
  Country: US (occurrence: US)
  Receive Date: 20230208
  Receipt Date: 20230630
  Transmission Date: 20230722
  Serious: No
  Sender: FDA-Public Use
  Company Number: US-PFIZER INC-PV202300022214

PATIENT
  Age: 92 Year
  Sex: Female
  Weight: 53.98 kg

DRUGS (1)
  1. BRAFTOVI [Suspect]
     Active Substance: ENCORAFENIB
     Indication: Colon cancer
     Dosage: 4 DF, DAILY
     Route: 048
     Dates: start: 202303

REACTIONS (1)
  - Hypoacusis [Unknown]
